FAERS Safety Report 15592011 (Version 1)
Quarter: 2018Q4

REPORT INFORMATION
  Report Type: Other
  Country: CA (occurrence: CA)
  Receive Date: 20181107
  Receipt Date: 20181107
  Transmission Date: 20190205
  Serious: Yes (Other)
  Sender: FDA-Public Use
  Company Number: CA-DUCHESNAY INC.-2058536

PATIENT
  Sex: Female
  Weight: 2 kg

DRUGS (8)
  1. MTERYTI [Suspect]
     Active Substance: FOLIC ACID\MINERALS\VITAMINS
     Indication: PREGNANCY
     Route: 064
  2. BUPRENORPHINE AND NALOXONE [Suspect]
     Active Substance: BUPRENORPHINE\NALOXONE
     Route: 064
  3. COCAINE HYDROCHLORIDE. [Suspect]
     Active Substance: COCAINE HYDROCHLORIDE
     Route: 064
  4. SUBUTEX [Suspect]
     Active Substance: BUPRENORPHINE HYDROCHLORIDE
     Route: 064
  5. SUBOXONE [Suspect]
     Active Substance: BUPRENORPHINE HYDROCHLORIDE\NALOXONE HYDROCHLORIDE
     Route: 064
  6. NICOTINE. [Suspect]
     Active Substance: NICOTINE
     Route: 064
  7. OPIOID(S) [Suspect]
     Active Substance: UNSPECIFIED INGREDIENT
     Route: 064
  8. CANNABIS [Suspect]
     Active Substance: CANNABIS SATIVA SUBSP. INDICA TOP
     Route: 064

REACTIONS (2)
  - Drug withdrawal syndrome neonatal [Unknown]
  - Respiratory disorder neonatal [Unknown]
